FAERS Safety Report 9393581 (Version 1)
Quarter: 2013Q3

REPORT INFORMATION
  Report Type: Spontaneous
  Country: US (occurrence: US)
  Receive Date: 20130710
  Receipt Date: 20130710
  Transmission Date: 20140515
  Serious: No
  Sender: FDA-Public Use
  Company Number: US-009507513-1306USA014390

PATIENT
  Sex: Male

DRUGS (2)
  1. DR. SCHOLL^S FREEZE AWAY DUAL ACTION COMMON + PLANTAR WART REMOVER [Suspect]
     Indication: SKIN PAPILLOMA
     Dosage: UNK, UNKNOWN
     Route: 061
  2. DR. SCHOLL^S FREEZE AWAY DUAL ACTION COMMON + PLANTAR WART REMOVER [Suspect]
     Indication: MELANOCYTIC NAEVUS

REACTIONS (2)
  - Nerve injury [Recovered/Resolved]
  - Loss of control of legs [Recovered/Resolved]
